FAERS Safety Report 7148429-5 (Version None)
Quarter: 2010Q4

REPORT INFORMATION
  Report Type: 
  Country: None (occurrence: None)
  Receive Date: 20101209
  Receipt Date: 20101129
  Transmission Date: 20110411
  Serious: Yes (Other)
  Sender: FDA-Public Use
  Company Number: BR-JNJFOC-20101203089

PATIENT
  Sex: Female
  Weight: 44 kg

DRUGS (6)
  1. TRAMAL [Suspect]
     Indication: PRODUCT USED FOR UNKNOWN INDICATION
     Route: 048
  2. GARDENAL [Concomitant]
     Indication: CONVULSION
  3. TEGRETOL [Concomitant]
     Indication: CONVULSION
  4. LAMOTRIGINE [Concomitant]
     Indication: CONVULSION
  5. DORFLEX [Concomitant]
  6. LUFTAL [Concomitant]

REACTIONS (3)
  - OSTEITIS [None]
  - SLEEP TALKING [None]
  - SOMNOLENCE [None]
